FAERS Safety Report 9981286 (Version 1)
Quarter: 2014Q1

REPORT INFORMATION
  Report Type: Spontaneous
  Country: US (occurrence: None)
  Receive Date: 20140305
  Receipt Date: 20140305
  Transmission Date: 20141002
  Serious: Yes (Disabling, Other)
  Sender: FDA-Public Use
  Company Number: VAL_02985_2014

PATIENT
  Sex: Female

DRUGS (1)
  1. METOPROLOL [Suspect]
     Indication: PRODUCT USED FOR UNKNOWN INDICATION
     Dosage: (200 MG, DF)
     Dates: start: 201307

REACTIONS (6)
  - Heart rate increased [None]
  - Blood cholesterol increased [None]
  - Asthenia [None]
  - Sleep disorder [None]
  - Feeling abnormal [None]
  - Drug ineffective [None]
